FAERS Safety Report 7993572-1 (Version None)
Quarter: 2011Q4

REPORT INFORMATION
  Report Type: 
  Country: None (occurrence: None)
  Receive Date: 20111219
  Receipt Date: 20111202
  Transmission Date: 20120403
  Serious: Yes (Hospitalization)
  Sender: FDA-Public Use
  Company Number: PR-ABBOTT-11P-131-0872470-00

PATIENT
  Sex: Male
  Weight: 75.818 kg

DRUGS (1)
  1. HUMIRA [Suspect]
     Indication: CROHN'S DISEASE
     Dosage: 1 IN 15 DAYS: 4 PENS 1ST ADMINISTRATION
     Route: 058
     Dates: start: 20111011, end: 20111025

REACTIONS (2)
  - INTESTINAL FISTULA [None]
  - HEPATIC ENZYME INCREASED [None]
